FAERS Safety Report 11206208 (Version 1)
Quarter: 2015Q2

REPORT INFORMATION
  Report Type: Spontaneous
  Country: US (occurrence: None)
  Receive Date: 20150619
  Receipt Date: 20150619
  Transmission Date: 20150821
  Serious: Yes (Death)
  Sender: FDA-Public Use
  Company Number: None

PATIENT
  Age: 84 Year
  Sex: Male
  Weight: 66.23 kg

DRUGS (1)
  1. VENOFER [Suspect]
     Active Substance: IRON SUCROSE
     Indication: ANAEMIA
     Dosage: 300MG/100ML EVERY 2-3 WEEKS
     Route: 042
     Dates: start: 20150615, end: 20150615

REACTIONS (1)
  - Death [None]

NARRATIVE: CASE EVENT DATE: 20150616
